FAERS Safety Report 6904030-7 (Version None)
Quarter: 2010Q3

REPORT INFORMATION
  Report Type: 
  Country: None (occurrence: None)
  Receive Date: 20100804
  Receipt Date: 20090303
  Transmission Date: 20110219
  Serious: No
  Sender: FDA-Public Use
  Company Number: US-PFIZER INC-2009178037

PATIENT
  Sex: Female
  Weight: 47.6 kg

DRUGS (2)
  1. LYRICA [Suspect]
     Indication: FIBROMYALGIA
     Dosage: UNK
  2. DITROPAN [Concomitant]
     Indication: GLAUCOMA

REACTIONS (2)
  - MEMORY IMPAIRMENT [None]
  - SOMNOLENCE [None]
